FAERS Safety Report 4334100-1 (Version None)
Quarter: 2004Q2

REPORT INFORMATION
  Report Type: 
  Country: None (occurrence: None)
  Receive Date: 20040402
  Receipt Date: 20040324
  Transmission Date: 20050107
  Serious: Yes (Life-Threatening)
  Sender: FDA-Public Use
  Company Number: 2004US000143

PATIENT
  Age: 9 Year
  Sex: Male

DRUGS (8)
  1. AMBISOME [Suspect]
     Indication: DISEASE RECURRENCE
     Dosage: 5 MG/KG, UID/QD, INTRAVENOUS
     Route: 042
     Dates: start: 20031225, end: 20040111
  2. AMBISOME [Suspect]
     Indication: PYREXIA
     Dosage: 5 MG/KG, UID/QD, INTRAVENOUS
     Route: 042
     Dates: start: 20031225, end: 20040111
  3. AMBISOME [Suspect]
     Indication: DISEASE RECURRENCE
     Dosage: 5 MG/KG, UID/QD, INTRAVENOUS
     Route: 042
     Dates: start: 20031225, end: 20040113
  4. AMBISOME [Suspect]
     Indication: PYREXIA
     Dosage: 5 MG/KG, UID/QD, INTRAVENOUS
     Route: 042
     Dates: start: 20031225, end: 20040113
  5. AMBISOME [Suspect]
     Indication: DISEASE RECURRENCE
     Dosage: 5 MG/KG, UID/QD, INTRAVENOUS
     Route: 042
     Dates: start: 20040113, end: 20040113
  6. AMBISOME [Suspect]
     Indication: PYREXIA
     Dosage: 5 MG/KG, UID/QD, INTRAVENOUS
     Route: 042
     Dates: start: 20040113, end: 20040113
  7. MEROPENEM [Concomitant]
  8. TEICOPLANIN [Concomitant]

REACTIONS (9)
  - ABDOMINAL PAIN [None]
  - CEREBRAL HAEMORRHAGE [None]
  - CHROMATURIA [None]
  - HAEMOGLOBINURIA [None]
  - HYPERTENSION [None]
  - INTRAVASCULAR HAEMOLYSIS [None]
  - PETECHIAE [None]
  - THROMBOCYTOPENIA [None]
  - VOMITING [None]
